FAERS Safety Report 14190502 (Version 4)
Quarter: 2017Q4

REPORT INFORMATION
  Report Type: Spontaneous
  Country: US (occurrence: US)
  Receive Date: 20171115
  Receipt Date: 20171122
  Transmission Date: 20180321
  Serious: No
  Sender: FDA-Public Use
  Company Number: US-009507513-1710USA008326

PATIENT
  Age: 25 Year
  Sex: Female
  Weight: 68.03 kg

DRUGS (1)
  1. NEXPLANON [Suspect]
     Active Substance: ETONOGESTREL
     Indication: CONTRACEPTION
     Dosage: 1 DF, 3 YEAR IMPLANT, IN THE LEFT ARM
     Dates: start: 20140924

REACTIONS (4)
  - Incorrect drug administration duration [Unknown]
  - Difficulty removing drug implant [Not Recovered/Not Resolved]
  - Pain in extremity [Unknown]
  - Device deployment issue [Not Recovered/Not Resolved]

NARRATIVE: CASE EVENT DATE: 20140924
